FAERS Safety Report 7421456-6 (Version None)
Quarter: 2011Q2

REPORT INFORMATION
  Report Type: 
  Country: None (occurrence: None)
  Receive Date: 20110418
  Receipt Date: 20110414
  Transmission Date: 20111010
  Serious: Yes (Other)
  Sender: FDA-Public Use
  Company Number: DE-ABBOTT-11P-062-0719131-00

PATIENT
  Age: 34 Year
  Sex: Female

DRUGS (1)
  1. ERGENYL CHRONO [Suspect]
     Indication: PRODUCT USED FOR UNKNOWN INDICATION
     Route: 048

REACTIONS (2)
  - BLOOD PROLACTIN INCREASED [None]
  - HABITUAL ABORTION [None]
